FAERS Safety Report 10244285 (Version 1)
Quarter: 2014Q1

REPORT INFORMATION
  Report Type: Spontaneous
  Country: US (occurrence: None)
  Receive Date: 20140306
  Receipt Date: 20140306
  Transmission Date: 20141002
  Serious: Yes (Other)
  Sender: FDA-Public Use
  Company Number: 163-21880-13100921

PATIENT
  Age: 62 Year
  Sex: Female

DRUGS (4)
  1. REVLIMID (LENALIDOMIDE) (10 MILLIGRAM, CAPSULES) [Suspect]
     Indication: PLASMA CELL MYELOMA
     Route: 048
     Dates: start: 20130820
  2. ASA (ACETYLSALICYLIC ACID) (UNKNOWN) [Concomitant]
  3. GABAPENTIN (UNKNOWN) [Concomitant]
  4. DEXAMETHASONE (UNKNOWN) [Concomitant]

REACTIONS (5)
  - Haemoglobin decreased [None]
  - Feeling cold [None]
  - Feeling hot [None]
  - Vomiting [None]
  - Diarrhoea [None]
